FAERS Safety Report 9366990 (Version 2)
Quarter: 2013Q3

REPORT INFORMATION
  Report Type: Spontaneous
  Country: CN (occurrence: CN)
  Receive Date: 20130625
  Receipt Date: 20130715
  Transmission Date: 20140515
  Serious: No
  Sender: FDA-Public Use
  Company Number: CN-GLAXOSMITHKLINE-B0902350A

PATIENT
  Age: 40 Year
  Sex: Male
  Weight: 70 kg

DRUGS (1)
  1. BACTROBAN [Suspect]
     Indication: SKIN WOUND
     Route: 061
     Dates: start: 201306, end: 201306

REACTIONS (2)
  - Wound secretion [Recovered/Resolved]
  - Wound complication [Recovered/Resolved]
